FAERS Safety Report 11554749 (Version 1)
Quarter: 2015Q3

REPORT INFORMATION
  Report Type: Spontaneous
  Country: CN (occurrence: CN)
  Receive Date: 20150925
  Receipt Date: 20150925
  Transmission Date: 20151125
  Serious: Yes (Hospitalization)
  Sender: FDA-Public Use
  Company Number: CN-FRESENIUS KABI-FK201504528

PATIENT
  Age: 48 Year
  Sex: Male

DRUGS (2)
  1. OXALIPLATIN (MANUFACTURER UNKNOWN) [Suspect]
     Active Substance: OXALIPLATIN
     Indication: GASTRIC CANCER
     Route: 041
  2. TS-1 [Suspect]
     Active Substance: GIMERACIL\OTERACIL\TEGAFUR
     Indication: GASTRIC CANCER
     Route: 048

REACTIONS (6)
  - Gallbladder perforation [Recovered/Resolved]
  - Localised intraabdominal fluid collection [None]
  - Blood bilirubin unconjugated increased [None]
  - Flatulence [None]
  - Aspartate aminotransferase increased [None]
  - Blood bilirubin increased [None]
